FAERS Safety Report 20684213 (Version 10)
Quarter: 2024Q2

REPORT INFORMATION
  Report Type: Spontaneous
  Country: US (occurrence: US)
  Receive Date: 20220407
  Receipt Date: 20240513
  Transmission Date: 20240716
  Serious: Yes (Other)
  Sender: FDA-Public Use
  Company Number: US-PFIZER INC-202100978579

PATIENT
  Age: 78 Year
  Sex: Female
  Weight: 70.31 kg

DRUGS (3)
  1. IBRANCE [Suspect]
     Active Substance: PALBOCICLIB
     Indication: Breast cancer metastatic
     Dosage: 125 MG, TAKING IT ONE TABLET ONCE PER DAY BY MOUTH
     Route: 048
     Dates: start: 20210723
  2. IBRANCE [Suspect]
     Active Substance: PALBOCICLIB
     Dosage: DAILY FOR 21 DAYS THEN HOLD FOR 7 DAYS BEFORE STARTING NEW 21 DAY COURSE
     Route: 048
  3. IBRANCE [Suspect]
     Active Substance: PALBOCICLIB
     Dosage: 125 MG

REACTIONS (9)
  - Hip arthroplasty [Unknown]
  - Pruritus [Not Recovered/Not Resolved]
  - Dysphonia [Unknown]
  - Amnesia [Unknown]
  - Balance disorder [Unknown]
  - Visual impairment [Unknown]
  - Oropharyngeal discomfort [Unknown]
  - Vision blurred [Unknown]
  - Neoplasm progression [Unknown]
